FAERS Safety Report 7046500-X (Version None)
Quarter: 2010Q4

REPORT INFORMATION
  Report Type: 
  Country: None (occurrence: None)
  Receive Date: 20101014
  Receipt Date: 20101011
  Transmission Date: 20110411
  Serious: Yes (Hospitalization)
  Sender: FDA-Public Use
  Company Number: PHHO2010DE14745

PATIENT
  Sex: Female
  Weight: 56 kg

DRUGS (4)
  1. FTY 720 FTY+ [Suspect]
     Indication: MULTIPLE SCLEROSIS
     Dosage: 0.5 MG
     Route: 048
     Dates: start: 20100916
  2. BUSCOPAN [Concomitant]
  3. NOVALGIN [Concomitant]
  4. CIPRALEX [Suspect]

REACTIONS (4)
  - CLAVICLE FRACTURE [None]
  - CONCUSSION [None]
  - FALL [None]
  - RIB FRACTURE [None]
